FAERS Safety Report 21370780 (Version 1)
Quarter: 2022Q3

REPORT INFORMATION
  Report Type: Other
  Country: DE (occurrence: None)
  Receive Date: 20220923
  Receipt Date: 20220923
  Transmission Date: 20221026
  Serious: Yes (Hospitalization)
  Sender: FDA-Public Use
  Company Number: DE-ROCHE-3179939

PATIENT
  Age: 13 Year
  Sex: Female
  Weight: 50 kg

DRUGS (2)
  1. EVRYSDI [Suspect]
     Active Substance: RISDIPLAM
     Indication: Spinal muscular atrophy
     Route: 048
     Dates: start: 20210910, end: 20220207
  2. RAMIPRIL [Concomitant]
     Active Substance: RAMIPRIL
     Dates: start: 20161012

REACTIONS (2)
  - Bronchial obstruction [Recovered/Resolved]
  - Pneumonitis aspiration [Recovered/Resolved]

NARRATIVE: CASE EVENT DATE: 20211015
